FAERS Safety Report 6304872-5 (Version None)
Quarter: 2009Q3

REPORT INFORMATION
  Report Type: 
  Country: None (occurrence: None)
  Receive Date: 20090811
  Receipt Date: 20090810
  Transmission Date: 20100115
  Serious: Yes (Hospitalization)
  Sender: FDA-Public Use
  Company Number: BE-BAYER-200927270GPV

PATIENT
  Age: 57 Year
  Sex: Male
  Weight: 52 kg

DRUGS (4)
  1. SORAFENIB [Suspect]
     Indication: HEAD AND NECK CANCER
     Route: 048
     Dates: start: 20080911, end: 20090507
  2. SORAFENIB [Suspect]
     Route: 048
     Dates: start: 20090507, end: 20090719
  3. XANAX [Concomitant]
     Indication: ANXIETY
     Route: 048
  4. COVERSYL [Concomitant]
     Indication: HYPERTENSION
     Route: 048
     Dates: start: 20081030

REACTIONS (1)
  - PNEUMOTHORAX [None]
